FAERS Safety Report 16503818 (Version 8)
Quarter: 2019Q4

REPORT INFORMATION
  Report Type: Spontaneous
  Country: US (occurrence: US)
  Receive Date: 20190701
  Receipt Date: 20191227
  Transmission Date: 20200122
  Serious: Yes (Hospitalization, Other)
  Sender: FDA-Public Use
  Company Number: US-PFIZER INC-2019273534

PATIENT
  Age: 49 Year
  Sex: Male
  Weight: 109 kg

DRUGS (7)
  1. ZOLOFT [Concomitant]
     Active Substance: SERTRALINE HYDROCHLORIDE
     Indication: ANXIETY
     Dosage: UNK
  2. LYRICA [Suspect]
     Active Substance: PREGABALIN
     Dosage: 225 UG, 2X/DAY
     Route: 048
     Dates: start: 2019, end: 2019
  3. LYRICA [Suspect]
     Active Substance: PREGABALIN
     Dosage: 125 MG, 2X/DAY
     Route: 048
     Dates: start: 2019, end: 2019
  4. LYRICA [Suspect]
     Active Substance: PREGABALIN
     Dosage: 225 MG, 2X/DAY
     Route: 048
     Dates: start: 201906, end: 201906
  5. LYRICA [Suspect]
     Active Substance: PREGABALIN
     Indication: NERVE INJURY
     Dosage: 225 MG, 2X/DAY
     Route: 048
  6. LYRICA [Suspect]
     Active Substance: PREGABALIN
     Indication: POLYNEUROPATHY
     Dosage: 400 MG, DAILY
     Route: 048
  7. LYRICA [Suspect]
     Active Substance: PREGABALIN
     Dosage: UNK, 1X/DAY
     Route: 048
     Dates: start: 20190618, end: 201906

REACTIONS (7)
  - Hypertension [Unknown]
  - Intentional product use issue [Unknown]
  - Condition aggravated [Unknown]
  - Anxiety [Recovering/Resolving]
  - Product prescribing error [Unknown]
  - Malaise [Unknown]
  - Withdrawal syndrome [Not Recovered/Not Resolved]

NARRATIVE: CASE EVENT DATE: 201806
